FAERS Safety Report 12970569 (Version 2)
Quarter: 2016Q4

REPORT INFORMATION
  Report Type: Spontaneous
  Country: BE (occurrence: BE)
  Receive Date: 20161123
  Receipt Date: 20161223
  Transmission Date: 20170207
  Serious: Yes (Death)
  Sender: FDA-Public Use
  Company Number: BE-ELI_LILLY_AND_COMPANY-BE201611006999

PATIENT
  Sex: Male

DRUGS (11)
  1. ALIMTA [Suspect]
     Active Substance: PEMETREXED DISODIUM
     Indication: LUNG NEOPLASM MALIGNANT
     Dosage: UNK UNK, UNKNOWN
     Route: 065
     Dates: start: 20140521
  2. INNOHEP [Concomitant]
     Active Substance: TINZAPARIN SODIUM
     Dosage: 14000 DF, QD
     Route: 058
  3. CISPLATIN. [Concomitant]
     Active Substance: CISPLATIN
     Indication: LUNG NEOPLASM MALIGNANT
     Dosage: UNK, UNKNOWN
     Route: 065
  4. CRESTOR [Concomitant]
     Active Substance: ROSUVASTATIN CALCIUM
     Dosage: 20 MG, QD
     Route: 065
  5. BURINEX [Concomitant]
     Active Substance: BUMETANIDE
     Dosage: 1 MG, QD
     Route: 065
  6. ZANTAC [Concomitant]
     Active Substance: RANITIDINE HYDROCHLORIDE
     Dosage: 150 MG, QD
     Route: 065
  7. METFORMIN [Concomitant]
     Active Substance: METFORMIN HYDROCHLORIDE
     Dosage: 850 MG, QD
     Route: 065
  8. MEDROL [Concomitant]
     Active Substance: METHYLPREDNISOLONE
     Dosage: 4 MG, QD
     Route: 065
  9. DIAMOX                             /00016901/ [Concomitant]
     Active Substance: ACETAZOLAMIDE
     Dosage: 250 MG, QD
     Route: 065
  10. XALKORI [Concomitant]
     Active Substance: CRIZOTINIB
     Dosage: 250 MG, BID
     Route: 065
  11. EMCONCOR [Concomitant]
     Active Substance: BISOPROLOL FUMARATE
     Dosage: 2.5 MG, PRN
     Route: 065

REACTIONS (1)
  - Respiratory failure [Fatal]
